FAERS Safety Report 7989616-3 (Version None)
Quarter: 2011Q4

REPORT INFORMATION
  Report Type: 
  Country: None (occurrence: None)
  Receive Date: 20111219
  Receipt Date: 20111212
  Transmission Date: 20120403
  Serious: Yes (Hospitalization, Other)
  Sender: FDA-Public Use
  Company Number: US-AMGEN-USASP2011066057

PATIENT
  Age: 59 Year
  Sex: Female

DRUGS (3)
  1. ENBREL [Suspect]
     Indication: RHEUMATOID ARTHRITIS
     Dosage: 25 MG, 2 TIMES/WK
     Dates: start: 20050101
  2. TREXALL [Concomitant]
     Dosage: 7 MG, QWK
  3. ENBREL [Suspect]
     Indication: OSTEOARTHRITIS

REACTIONS (3)
  - OSTEOARTHRITIS [None]
  - RHEUMATOID ARTHRITIS [None]
  - JOINT DESTRUCTION [None]
